FAERS Safety Report 19370829 (Version 5)
Quarter: 2021Q3

REPORT INFORMATION
  Report Type: Spontaneous
  Country: NL (occurrence: PL)
  Receive Date: 20210603
  Receipt Date: 20210709
  Transmission Date: 20211014
  Serious: Yes (Hospitalization, Other)
  Sender: FDA-Public Use
  Company Number: PL-FRESENIUS KABI-FK202105588

PATIENT
  Age: 65 Year
  Sex: Male

DRUGS (31)
  1. ACETYLSALICYLIC ACID [Suspect]
     Active Substance: ASPIRIN
     Indication: PRODUCT USED FOR UNKNOWN INDICATION
     Dosage: 75 MG
     Route: 065
     Dates: start: 20190811
  2. TORASEMIDE [Suspect]
     Active Substance: TORSEMIDE
     Dosage: 10 MG
     Route: 065
     Dates: start: 202103
  3. ATORVASTATIN CALCIUM. [Suspect]
     Active Substance: ATORVASTATIN CALCIUM
     Dosage: 40 MG
     Route: 065
     Dates: start: 20190811
  4. FUROSEMIDE (MANUFACTURER UNKNOWN) [Suspect]
     Active Substance: FUROSEMIDE
     Indication: PRODUCT USED FOR UNKNOWN INDICATION
     Dosage: 40 MG, QD
     Route: 065
     Dates: start: 202010
  5. ACETYLSALICYLIC ACID [Suspect]
     Active Substance: ASPIRIN
     Dosage: 75 MG
     Route: 065
     Dates: start: 20191115
  6. EPLERENONE. [Suspect]
     Active Substance: EPLERENONE
     Dosage: 50 MG
     Route: 065
     Dates: start: 202103
  7. CARVEDILOL. [Suspect]
     Active Substance: CARVEDILOL
     Dosage: 25 MG, QD
     Route: 065
     Dates: start: 202103
  8. ATORVASTATIN CALCIUM. [Suspect]
     Active Substance: ATORVASTATIN CALCIUM
     Indication: PRODUCT USED FOR UNKNOWN INDICATION
     Dosage: 20 MG
     Route: 065
  9. PANTOPRAZOLE SODIUM SESQUIHYDRATE [Suspect]
     Active Substance: PANTOPRAZOLE SODIUM
     Indication: PRODUCT USED FOR UNKNOWN INDICATION
     Dosage: UNK
     Route: 065
     Dates: start: 20190811
  10. CARVEDILOL. [Suspect]
     Active Substance: CARVEDILOL
     Dosage: 12.5 MG, TID (3X/DAY)
     Route: 065
     Dates: start: 202103
  11. VALSARTAN/SACUBITRIL [Suspect]
     Active Substance: SACUBITRIL\VALSARTAN
     Dosage: 24/26 MG, BID
     Route: 065
     Dates: start: 202103
  12. DAPAGLIFLOZIN. [Concomitant]
     Active Substance: DAPAGLIFLOZIN
     Indication: PRODUCT USED FOR UNKNOWN INDICATION
     Dosage: 10 MG
     Route: 065
     Dates: start: 202103
  13. CARVEDILOL. [Suspect]
     Active Substance: CARVEDILOL
     Dosage: 12.5 MILLIGRAM, BID
     Route: 065
  14. FUROSEMIDE (MANUFACTURER UNKNOWN) [Suspect]
     Active Substance: FUROSEMIDE
     Dosage: 20 MILLIGRAM, BID
     Route: 065
     Dates: start: 20191017
  15. CLOPIDOGREL BISULFATE. [Suspect]
     Active Substance: CLOPIDOGREL BISULFATE
     Indication: PRODUCT USED FOR UNKNOWN INDICATION
     Dosage: 75 MG
     Route: 048
     Dates: start: 20190811
  16. METFORMIN [Suspect]
     Active Substance: METFORMIN HYDROCHLORIDE
     Indication: PRODUCT USED FOR UNKNOWN INDICATION
     Dosage: 500 MG, TID (3X/DAY)
     Route: 065
     Dates: start: 20190811
  17. RAMIPRIL. [Suspect]
     Active Substance: RAMIPRIL
     Indication: PRODUCT USED FOR UNKNOWN INDICATION
     Dosage: 2.5 MG
     Route: 065
     Dates: start: 20190811
  18. TORASEMIDE [Suspect]
     Active Substance: TORSEMIDE
     Indication: PRODUCT USED FOR UNKNOWN INDICATION
     Dosage: 5 MG
     Route: 065
     Dates: start: 20190811
  19. VALSARTAN/SACUBITRIL [Suspect]
     Active Substance: SACUBITRIL\VALSARTAN
     Indication: PRODUCT USED FOR UNKNOWN INDICATION
     Dosage: 24/26 MG, BID
     Route: 065
     Dates: start: 20191017
  20. ATORVASTATIN CALCIUM. [Suspect]
     Active Substance: ATORVASTATIN CALCIUM
     Dosage: 40 MG
     Route: 065
     Dates: start: 202103
  21. FUROSEMIDE (MANUFACTURER UNKNOWN) [Suspect]
     Active Substance: FUROSEMIDE
     Dosage: 40 MG, BID
     Route: 065
  22. ACETYLSALICYLIC ACID [Suspect]
     Active Substance: ASPIRIN
     Dosage: 75 MG
     Route: 065
     Dates: start: 20191015
  23. EPLERENONE. [Suspect]
     Active Substance: EPLERENONE
     Indication: PRODUCT USED FOR UNKNOWN INDICATION
     Dosage: 25 MG
     Route: 065
     Dates: start: 20190811
  24. EPLERENONE. [Suspect]
     Active Substance: EPLERENONE
     Dosage: 50 MG
     Route: 065
  25. TORASEMIDE [Suspect]
     Active Substance: TORSEMIDE
     Dosage: 10 MG
     Route: 065
  26. CARVEDILOL. [Suspect]
     Active Substance: CARVEDILOL
     Indication: PRODUCT USED FOR UNKNOWN INDICATION
     Dosage: 12.5 MG?0?6.25 MG
     Route: 065
  27. BISOPROLOL [Suspect]
     Active Substance: BISOPROLOL
     Indication: PRODUCT USED FOR UNKNOWN INDICATION
     Dosage: 2.5 MG
     Route: 065
     Dates: start: 20190811
  28. APIXABAN [Suspect]
     Active Substance: APIXABAN
     Dosage: 2.5 MG, BID
     Route: 065
     Dates: start: 202010
  29. METFORMIN [Suspect]
     Active Substance: METFORMIN HYDROCHLORIDE
     Dosage: 500 MG, TID (3X/DAY)
     Route: 065
     Dates: start: 202103
  30. APIXABAN [Suspect]
     Active Substance: APIXABAN
     Indication: CEREBROVASCULAR ACCIDENT PROPHYLAXIS
     Dosage: 2.5 MG, BID
     Route: 065
     Dates: start: 20191115
  31. APIXABAN [Suspect]
     Active Substance: APIXABAN
     Dosage: 2.5 MG, BID
     Route: 065
     Dates: start: 202103

REACTIONS (13)
  - Mitral valve incompetence [Unknown]
  - Mitral valve thickening [Unknown]
  - Mitral valve calcification [Unknown]
  - Pulmonary oedema [Unknown]
  - Platelet count decreased [Unknown]
  - Blood pressure decreased [Unknown]
  - Concomitant disease aggravated [Unknown]
  - Ejection fraction decreased [Unknown]
  - Heart rate decreased [Unknown]
  - Haemoglobin decreased [Unknown]
  - Glycosylated haemoglobin increased [Unknown]
  - N-terminal prohormone brain natriuretic peptide increased [Unknown]
  - Glomerular filtration rate decreased [Unknown]

NARRATIVE: CASE EVENT DATE: 201911
